FAERS Safety Report 7198038-7 (Version None)
Quarter: 2010Q4

REPORT INFORMATION
  Report Type: 
  Country: None (occurrence: None)
  Receive Date: 20101227
  Receipt Date: 20101221
  Transmission Date: 20110411
  Serious: Yes (Other)
  Sender: FDA-Public Use
  Company Number: US-ROCHE-749573

PATIENT
  Sex: Female
  Weight: 49.9 kg

DRUGS (3)
  1. KLONOPIN [Suspect]
     Indication: MITRAL VALVE PROLAPSE
     Dosage: EVERY NIGHT
     Route: 048
     Dates: start: 19980101
  2. XALATAN [Concomitant]
  3. XYZAL [Concomitant]

REACTIONS (5)
  - DRY EYE [None]
  - GLAUCOMA [None]
  - MUSCULOSKELETAL PAIN [None]
  - ROTATOR CUFF REPAIR [None]
  - SURGERY [None]
